FAERS Safety Report 12568837 (Version 1)
Quarter: 2016Q3

REPORT INFORMATION
  Report Type: Report from Study
  Country: US (occurrence: US)
  Receive Date: 20160719
  Receipt Date: 20160719
  Transmission Date: 20161109
  Serious: No
  Sender: FDA-Public Use
  Company Number: US-AMGEN-USASP2016090682

PATIENT
  Age: 52 Year
  Sex: Female

DRUGS (1)
  1. ENBREL [Suspect]
     Active Substance: ETANERCEPT
     Indication: RHEUMATOID ARTHRITIS
     Dosage: 50 MG, QWK
     Route: 065
     Dates: start: 20160701

REACTIONS (11)
  - Migraine [Recovering/Resolving]
  - Injection site pruritus [Unknown]
  - Arthralgia [Unknown]
  - Rash [Unknown]
  - Hyperhidrosis [Unknown]
  - Injection site erythema [Unknown]
  - Injection site mass [Unknown]
  - Chills [Unknown]
  - Feeling abnormal [Unknown]
  - Nasopharyngitis [Unknown]
  - Injection site swelling [Unknown]

NARRATIVE: CASE EVENT DATE: 201607
